FAERS Safety Report 11769792 (Version 3)
Quarter: 2018Q1

REPORT INFORMATION
  Report Type: Report from Study
  Country: KR (occurrence: KR)
  Receive Date: 20151123
  Receipt Date: 20180307
  Transmission Date: 20180508
  Serious: Yes (Hospitalization)
  Sender: FDA-Public Use
  Company Number: KR-ROCHE-1535901

PATIENT
  Age: 61 Year
  Sex: Male
  Weight: 75 kg

DRUGS (16)
  1. RANITIDINE. [Concomitant]
     Active Substance: RANITIDINE
     Indication: GASTRITIS PROPHYLAXIS
     Dosage: 2 AMPULE
     Route: 065
     Dates: start: 20150226, end: 20150226
  2. MAGMIL [Concomitant]
     Active Substance: MAGNESIUM HYDROXIDE
     Indication: CONSTIPATION
     Route: 065
     Dates: start: 20150227, end: 20150309
  3. COBIMETINIB. [Suspect]
     Active Substance: COBIMETINIB
     Indication: NEOPLASM
     Dosage: DATE OF MOST RECENT DOSE (60 MG) PRIOR TO PNEUMONIA: 24/FEB/2015 AT START TIME14:20?MOST RECENT DOSE
     Route: 048
     Dates: start: 20150216, end: 20150807
  4. METFORMIN [Concomitant]
     Active Substance: METFORMIN HYDROCHLORIDE
     Indication: HYPERGLYCAEMIA
     Route: 065
     Dates: start: 20150829, end: 20150903
  5. TRESTAN [Concomitant]
     Indication: DECREASED APPETITE
     Route: 065
     Dates: start: 20150209, end: 20150214
  6. ERDOSTEIN [Concomitant]
     Indication: PRODUCTIVE COUGH
     Route: 065
     Dates: start: 20150216, end: 20150216
  7. MOSAPRIDE CITRATE [Concomitant]
     Active Substance: MOSAPRIDE CITRATE
     Indication: GASTRITIS PROPHYLAXIS
     Route: 065
     Dates: start: 20150209, end: 20150214
  8. PAN-B-COMP [Concomitant]
     Dosage: NUTRITION
     Route: 065
     Dates: start: 20150226, end: 20150227
  9. SILYMARIN [Concomitant]
     Active Substance: DIETARY SUPPLEMENT\HERBALS\MILK THISTLE
     Indication: ASPARTATE AMINOTRANSFERASE INCREASED
     Route: 065
     Dates: start: 20150226, end: 20150227
  10. ATEZOLIZUMAB. [Suspect]
     Active Substance: ATEZOLIZUMAB
     Indication: NEOPLASM
     Dosage: DATE OF MOST RECENT DOSE (800MG) PRIOR TO FIRST FEVER: 26/JAN/2015 AT START TIME 12:45?DATE OF MOST
     Route: 042
     Dates: start: 20150126, end: 20150727
  11. ACETAMINOPHEN. [Concomitant]
     Active Substance: ACETAMINOPHEN
     Indication: PERIPHERAL SENSORY NEUROPATHY
     Route: 065
     Dates: start: 20150223
  12. ACETAMINOPHEN. [Concomitant]
     Active Substance: ACETAMINOPHEN
     Indication: PYREXIA
  13. GLIMEPRID [Concomitant]
     Active Substance: GLIMEPIRIDE
     Indication: HYPERGLYCAEMIA
     Route: 065
     Dates: start: 20150829
  14. SILYMARIN [Concomitant]
     Active Substance: DIETARY SUPPLEMENT\HERBALS\MILK THISTLE
     Indication: ALANINE AMINOTRANSFERASE INCREASED
  15. BEECOM HEXA [Concomitant]
     Indication: FATIGUE
     Route: 065
     Dates: start: 20150213, end: 20150214
  16. JANUMET [Concomitant]
     Active Substance: METFORMIN HYDROCHLORIDE\SITAGLIPTIN PHOSPHATE
     Indication: HYPERGLYCAEMIA
     Dosage: 2 TABLETS
     Route: 065
     Dates: start: 20150904

REACTIONS (2)
  - Pneumonia [Recovered/Resolved]
  - Pneumonia pneumococcal [Recovered/Resolved]

NARRATIVE: CASE EVENT DATE: 20150206
